FAERS Safety Report 6243949-X (Version None)
Quarter: 2009Q2

REPORT INFORMATION
  Report Type: 
  Country: None (occurrence: None)
  Receive Date: 20090623
  Receipt Date: 20090609
  Transmission Date: 20091009
  Serious: Yes (Hospitalization)
  Sender: FDA-Public Use
  Company Number: ALA_00310_2009

PATIENT
  Age: 86 Year
  Sex: Male

DRUGS (3)
  1. METOCLOPRAMIDE [Suspect]
     Indication: DRUG USE FOR UNKNOWN INDICATION
     Dosage: 10 MG QID
  2. L-THYROXINE /00068001/ [Concomitant]
  3. LISINOPRIL [Concomitant]

REACTIONS (4)
  - CARDIAC FAILURE [None]
  - ELECTROCARDIOGRAM QT PROLONGED [None]
  - RENAL IMPAIRMENT [None]
  - TORSADE DE POINTES [None]
